FAERS Safety Report 9367672 (Version 1)
Quarter: 2013Q2

REPORT INFORMATION
  Report Type: Spontaneous
  Country: PH (occurrence: PH)
  Receive Date: 20130625
  Receipt Date: 20130625
  Transmission Date: 20140414
  Serious: Yes (Death, Life-Threatening)
  Sender: FDA-Public Use
  Company Number: PH-009507513-1306PHL006074

PATIENT
  Age: 69 Year
  Sex: Female

DRUGS (1)
  1. JANUMET [Suspect]
     Dosage: 1 DF, BID
     Route: 048
     Dates: end: 20130613

REACTIONS (1)
  - Blood creatinine increased [Fatal]
